FAERS Safety Report 26003438 (Version 1)
Quarter: 2025Q4

REPORT INFORMATION
  Report Type: Spontaneous
  Country: CN (occurrence: CN)
  Receive Date: 20251106
  Receipt Date: 20251106
  Transmission Date: 20260118
  Serious: Yes (Hospitalization, Disabling, Other)
  Sender: BEIGENE
  Company Number: CN-BEIGENE-BGN-2025-018927

PATIENT
  Age: 67 Year
  Weight: 75 kg

DRUGS (1)
  1. TISLELIZUMAB [Suspect]
     Active Substance: TISLELIZUMAB
     Indication: Lung neoplasm malignant
     Dosage: 200 MILLIGRAM, Q3WK

REACTIONS (3)
  - Immune-mediated lung disease [Recovering/Resolving]
  - Pneumocystis jirovecii infection [Unknown]
  - Acinetobacter infection [Unknown]
